FAERS Safety Report 14948161 (Version 1)
Quarter: 2018Q2

REPORT INFORMATION
  Report Type: Spontaneous
  Country: US (occurrence: US)
  Receive Date: 20180529
  Receipt Date: 20180529
  Transmission Date: 20180711
  Serious: No
  Sender: FDA-Public Use
  Company Number: US-ALKERMES INC.-ALK-2018-002813

PATIENT
  Age: 27 Year
  Sex: Male
  Weight: 74.83 kg

DRUGS (1)
  1. VIVITROL [Suspect]
     Active Substance: NALTREXONE
     Indication: DRUG DEPENDENCE
     Dosage: 380 MG, QMO
     Route: 030
     Dates: start: 20180416

REACTIONS (5)
  - Drug dependence [Unknown]
  - Drug effect decreased [Unknown]
  - Therapeutic response shortened [Unknown]
  - Euphoric mood [Unknown]
  - Insomnia [Unknown]

NARRATIVE: CASE EVENT DATE: 2018
